FAERS Safety Report 13099011 (Version 1)
Quarter: 2017Q1

REPORT INFORMATION
  Report Type: Spontaneous
  Country: US (occurrence: US)
  Receive Date: 20170109
  Receipt Date: 20170109
  Transmission Date: 20170428
  Serious: No
  Sender: FDA-Public Use
  Company Number: US-DRREDDYS-USA/USA/16/0080848

PATIENT
  Age: 57 Year
  Sex: Female
  Weight: 86.1 kg

DRUGS (2)
  1. HABITROL [Suspect]
     Active Substance: NICOTINE
     Route: 065
  2. HABITROL [Suspect]
     Active Substance: NICOTINE
     Indication: SMOKING CESSATION THERAPY
     Route: 061

REACTIONS (5)
  - Application site burn [Recovered/Resolved]
  - Rash [Recovered/Resolved]
  - Drug dose omission [Unknown]
  - Application site erythema [Unknown]
  - Application site pruritus [Recovered/Resolved]
